FAERS Safety Report 5789619-3 (Version None)
Quarter: 2008Q2

REPORT INFORMATION
  Report Type: 
  Country: None (occurrence: None)
  Receive Date: 20080626
  Receipt Date: 20070816
  Transmission Date: 20081010
  Serious: No
  Sender: FDA-Public Use
  Company Number: US-BAYER-US-2007-030648

PATIENT
  Age: 48 Year
  Sex: Female
  Weight: 77 kg

DRUGS (2)
  1. ULTRAVIST 150 [Suspect]
     Indication: COMPUTERISED TOMOGRAM
     Dates: start: 20070727, end: 20070727
  2. ^SCAN C^ [Concomitant]
     Route: 048
     Dates: start: 20070727, end: 20070727

REACTIONS (3)
  - ANGIOEDEMA [None]
  - LIP SWELLING [None]
  - VOMITING [None]
